FAERS Safety Report 6860582-7 (Version None)
Quarter: 2010Q3

REPORT INFORMATION
  Report Type: 
  Country: None (occurrence: None)
  Receive Date: 20100720
  Receipt Date: 20100714
  Transmission Date: 20110219
  Serious: Yes (Death)
  Sender: FDA-Public Use
  Company Number: B0666212A

PATIENT
  Age: 66 Year
  Sex: Male

DRUGS (2)
  1. AMOXICILLIN AND CLAVULANATE POTASSIUM [Suspect]
     Indication: ACUTE TONSILLITIS
     Dosage: 625MG TWICE PER DAY
  2. PARACETAMOL [Concomitant]

REACTIONS (10)
  - CHROMATURIA [None]
  - DISEASE PROGRESSION [None]
  - FATIGUE [None]
  - HAEMOLYTIC ANAEMIA [None]
  - HEPATIC FUNCTION ABNORMAL [None]
  - HEPATOMEGALY [None]
  - HEPATOTOXICITY [None]
  - JAUNDICE [None]
  - MULTI-ORGAN FAILURE [None]
  - YELLOW SKIN [None]
